FAERS Safety Report 7625149 (Version 4)
Quarter: 2014Q1

REPORT INFORMATION
  Report Type: Spontaneous
  Country: US (occurrence: US)
  Receive Date: 20101012
  Receipt Date: 20140324
  Transmission Date: 20141002
  Serious: Yes (Hospitalization)
  Sender: FDA-Public Use
  Company Number: US-JNJFOC-20100405442

PATIENT
  Age: 67 Year
  Sex: Female
  Weight: 78.93 kg

DRUGS (27)
  1. REMICADE [Suspect]
     Indication: RHEUMATOID ARTHRITIS
     Dosage: APPROXIMATE TOTAL NUMBER OF INFUSIONS: 4
     Route: 042
     Dates: start: 20100212
  2. REMICADE [Suspect]
     Indication: RHEUMATOID ARTHRITIS
     Route: 042
     Dates: start: 20091208
  3. REMICADE [Suspect]
     Indication: RHEUMATOID ARTHRITIS
     Route: 042
     Dates: start: 20091027
  4. REMICADE [Suspect]
     Indication: RHEUMATOID ARTHRITIS
     Route: 042
     Dates: start: 20100202, end: 20100202
  5. METHOTREXATE [Suspect]
     Indication: RHEUMATOID ARTHRITIS
     Route: 048
  6. PREDNISONE [Suspect]
     Indication: RHEUMATOID ARTHRITIS
     Route: 048
  7. PREDNISONE [Suspect]
     Indication: RHEUMATOID ARTHRITIS
     Route: 048
  8. PREDNISONE [Suspect]
     Indication: RHEUMATOID ARTHRITIS
     Route: 048
  9. ALPRAZOLAM [Suspect]
     Indication: ANXIETY
  10. PERCOCET [Suspect]
     Indication: PAIN
     Route: 048
  11. REMERON [Suspect]
     Indication: INSOMNIA
     Route: 048
  12. REMERON [Suspect]
     Indication: DEPRESSION
     Route: 048
  13. REMERON [Suspect]
     Indication: ANXIETY
     Route: 048
  14. ANTIBIOTIC NOS [Suspect]
     Indication: PRODUCT USED FOR UNKNOWN INDICATION
  15. NOVOLOG [Concomitant]
     Route: 058
  16. FELODIPINE [Concomitant]
     Route: 048
  17. BENICAR [Concomitant]
     Route: 048
  18. MULTIPLE VITAMIN [Concomitant]
  19. PRILOSEC [Concomitant]
     Route: 048
  20. FOLIC ACID [Concomitant]
     Route: 048
  21. CALCIUM 600+D [Concomitant]
     Route: 048
  22. PROVENTIL HFA INHALANT [Concomitant]
     Indication: WHEEZING
     Route: 055
  23. PROVENTIL HFA INHALANT [Concomitant]
     Indication: DYSPNOEA
     Route: 055
  24. VITAMIN D [Concomitant]
     Route: 048
  25. TOPROL XL [Concomitant]
     Route: 048
  26. SIMVASTATIN [Concomitant]
     Route: 048
  27. PREMARIN [Concomitant]

REACTIONS (14)
  - Overdose [Unknown]
  - Septic shock [Recovered/Resolved]
  - Interstitial lung disease [Recovered/Resolved]
  - Opportunistic infection [Recovered/Resolved]
  - Blood albumin decreased [Unknown]
  - Haemoglobin decreased [Unknown]
  - Diarrhoea [Recovered/Resolved]
  - Headache [Recovering/Resolving]
  - Drug ineffective [Unknown]
  - Acute respiratory failure [Recovered/Resolved]
  - Adrenocortical insufficiency acute [Unknown]
  - Hypovolaemia [Recovered/Resolved]
  - Blood phosphorus decreased [Unknown]
  - Blood potassium decreased [Unknown]
